FAERS Safety Report 11071408 (Version 1)
Quarter: 2015Q2

REPORT INFORMATION
  Report Type: Spontaneous
  Country: PL (occurrence: None)
  Receive Date: 20150424
  Receipt Date: 20150424
  Transmission Date: 20150821
  Serious: Yes (Hospitalization, Other)
  Sender: FDA-Public Use
  Company Number: C-15-076

PATIENT
  Age: 16 Year
  Sex: Male

DRUGS (1)
  1. PSEUDOEPHEDRINE [Suspect]
     Active Substance: PSEUDOEPHEDRINE
     Indication: SUBSTANCE USE

REACTIONS (40)
  - Agitation [None]
  - Extrapyramidal disorder [None]
  - Neuroleptic malignant syndrome [None]
  - CYP2D6 polymorphism [None]
  - Delirium [None]
  - Schizophreniform disorder [None]
  - Educational problem [None]
  - Insomnia [None]
  - Delusion [None]
  - Communication disorder [None]
  - Fluid intake reduced [None]
  - Loss of consciousness [None]
  - Blood urea increased [None]
  - Affect lability [None]
  - Eating disorder [None]
  - Aggression [None]
  - Coma [None]
  - Electrocardiogram T wave inversion [None]
  - Weight decreased [None]
  - Learning disorder [None]
  - Disturbance in attention [None]
  - Hallucination [None]
  - Somnolence [None]
  - Performance status decreased [None]
  - Hallucination, visual [None]
  - Seizure [None]
  - Psychotic disorder [None]
  - Respiratory failure [None]
  - Generalised tonic-clonic seizure [None]
  - Screaming [None]
  - Hypotension [None]
  - Blood creatine phosphokinase increased [None]
  - Dehydration [None]
  - Tachycardia [None]
  - Tachypnoea [None]
  - Dystonia [None]
  - Hyperhidrosis [None]
  - Heart injury [None]
  - Electrocardiogram ST segment elevation [None]
  - Memory impairment [None]

NARRATIVE: CASE EVENT DATE: 200909
